FAERS Safety Report 25785995 (Version 2)
Quarter: 2025Q3

REPORT INFORMATION
  Report Type: Report from Study
  Country: US (occurrence: US)
  Receive Date: 20250910
  Receipt Date: 20250916
  Transmission Date: 20251020
  Serious: No
  Sender: ACADIA PHARMACEUTICALS
  Company Number: US-ACADIA PHARMACEUTICALS INC.-ACA-2025-PIM-010022

PATIENT
  Sex: Male
  Weight: 73.923 kg

DRUGS (23)
  1. NUPLAZID [Suspect]
     Active Substance: PIMAVANSERIN TARTRATE
     Indication: Parkinson^s disease psychosis
     Dosage: 34 MILLIGRAM, QD
     Route: 048
     Dates: start: 20250714
  2. BUPROPION HYDROCHLORIDE XL [Concomitant]
     Active Substance: BUPROPION HYDROCHLORIDE
     Dosage: 150 MILLIGRAM, QD (AT BEDTIME)
     Route: 048
  3. BUPROPION HYDROCHLORIDE XL [Concomitant]
     Active Substance: BUPROPION HYDROCHLORIDE
     Dosage: 300 MILLIGRAM, QD (IN THE MORNING)
     Route: 048
  4. BUSPIRONE [Concomitant]
     Active Substance: BUSPIRONE HYDROCHLORIDE
     Dosage: 5 MILLIGRAM, BID (FOR 90 DAYS)
     Route: 048
     Dates: start: 20230621
  5. CARBIDOPA\LEVODOPA [Concomitant]
     Active Substance: CARBIDOPA\LEVODOPA
     Dates: start: 20250225
  6. CARBIDOPA\LEVODOPA [Concomitant]
     Active Substance: CARBIDOPA\LEVODOPA
     Dosage: UNK UNK, QD (1 TABLET (AT BEDTIME) FOR 90 DAYS)
     Route: 048
     Dates: start: 20221222
  7. CARBIDOPA\LEVODOPA [Concomitant]
     Active Substance: CARBIDOPA\LEVODOPA
     Dosage: UNK UNK, QD (1 TABLET (AT BEDTIME) FOR 90 DAYS)
     Route: 048
     Dates: start: 20240205
  8. ESOMEPRAZOLE MAGNESIUM [Concomitant]
     Active Substance: ESOMEPRAZOLE MAGNESIUM
     Dosage: 20 MILLIGRAM, QD (AT LEAST 1 HOUR BEFORE A MEAL SWALLOWING WHOLE. DO NOT CRUSH OR CHEW GRANULES)
     Route: 048
  9. EZETIMIBE [Concomitant]
     Active Substance: EZETIMIBE
     Dosage: 10 MILLIGRAM, QD
     Route: 048
  10. FINASTERIDE [Concomitant]
     Active Substance: FINASTERIDE
     Route: 048
  11. MORNIFLUMATE [Concomitant]
     Active Substance: MORNIFLUMATE
  12. ACETAMINOPHEN\HYDROCODONE [Concomitant]
     Active Substance: ACETAMINOPHEN\HYDROCODONE
     Indication: Pain
     Route: 048
  13. MEMANTINE [Concomitant]
     Active Substance: MEMANTINE
     Dosage: 10 MILLIGRAM, BID
     Route: 048
     Dates: start: 20241205
  14. METOPROLOL SUCCINATE [Concomitant]
     Active Substance: METOPROLOL SUCCINATE
     Dosage: 100 MILLIGRAM, QD
     Route: 048
  15. ONDANSETRON [Concomitant]
     Active Substance: ONDANSETRON
     Indication: Nausea
     Route: 048
     Dates: start: 20230206
  16. ONDANSETRON HYDROCHLORIDE [Concomitant]
     Active Substance: ONDANSETRON HYDROCHLORIDE
     Dosage: 4 MILLIGRAM, QD (AS NEEDED FOR 30 DAYS)
     Route: 048
     Dates: start: 20230102
  17. SINEMET [Concomitant]
     Active Substance: CARBIDOPA\LEVODOPA
     Dosage: UNK UNK, TID (1 TABLET FOR 90 DAYS)
     Route: 048
     Dates: start: 20230621
  18. TADALAFIL [Concomitant]
     Active Substance: TADALAFIL
     Dosage: 5 MILLIGRAM, QD
     Route: 048
  19. CLONAZEPAM [Concomitant]
     Active Substance: CLONAZEPAM
     Route: 048
  20. RASAGILINE [Concomitant]
     Active Substance: RASAGILINE
     Route: 048
  21. VALSARTAN [Concomitant]
     Active Substance: VALSARTAN
  22. SINEMET [Concomitant]
     Active Substance: CARBIDOPA\LEVODOPA
     Dosage: UNK, QD (AT NIGHT)
  23. PRAMIPEXOLE [Concomitant]
     Active Substance: PRAMIPEXOLE

REACTIONS (1)
  - Memory impairment [Not Recovered/Not Resolved]
